FAERS Safety Report 25728234 (Version 1)
Quarter: 2025Q3

REPORT INFORMATION
  Report Type: Spontaneous
  Country: US (occurrence: None)
  Receive Date: 20250826
  Receipt Date: 20250826
  Transmission Date: 20251021
  Serious: Yes (unspecified)
  Sender: FDA-CTU
  Company Number: None

PATIENT
  Age: 11 Year
  Sex: Male
  Weight: 23.3 kg

DRUGS (1)
  1. XEMBIFY [Suspect]
     Active Substance: HUMAN IMMUNOGLOBULIN G
     Indication: Lennox-Gastaut syndrome
     Dosage: OTHER FREQUENCY : WEEKLY;?STRENGTH: 4GM/20ML G  GRAM(S)
     Route: 058

REACTIONS (4)
  - Infusion site erythema [None]
  - Infusion site erosion [None]
  - Infusion site abscess [None]
  - Infusion site infection [None]

NARRATIVE: CASE EVENT DATE: 20250825
